FAERS Safety Report 7983325-2 (Version None)
Quarter: 2011Q4

REPORT INFORMATION
  Report Type: 
  Country: None (occurrence: None)
  Receive Date: 20111215
  Receipt Date: 20111209
  Transmission Date: 20120403
  Serious: No
  Sender: FDA-Public Use
  Company Number: US-BAYER-2011-119925

PATIENT
  Age: 45 Year
  Sex: Male
  Weight: 82 kg

DRUGS (1)
  1. NAPROXEN (ALEVE) [Suspect]
     Indication: TOOTH FRACTURE
     Route: 048

REACTIONS (3)
  - HYPERTENSION [None]
  - NO ADVERSE EVENT [None]
  - ADVERSE EVENT [None]
